FAERS Safety Report 17141439 (Version 2)
Quarter: 2020Q1

REPORT INFORMATION
  Report Type: Spontaneous
  Country: DE (occurrence: DE)
  Receive Date: 20191211
  Receipt Date: 20200124
  Transmission Date: 20200409
  Serious: Yes (Other)
  Sender: FDA-Public Use
  Company Number: DE-OTSUKA-2019_041023

PATIENT
  Age: 46 Year
  Sex: Female

DRUGS (1)
  1. ARIPIPRAZOLE. [Suspect]
     Active Substance: ARIPIPRAZOLE
     Indication: SCHIZOPHRENIA
     Dosage: 20 MG, QD
     Route: 065
     Dates: start: 201705

REACTIONS (2)
  - Condition aggravated [Recovered/Resolved with Sequelae]
  - Bone loss [Recovered/Resolved with Sequelae]
